FAERS Safety Report 4990856-6 (Version None)
Quarter: 2006Q2

REPORT INFORMATION
  Report Type: 
  Country: None (occurrence: None)
  Receive Date: 20060428
  Receipt Date: 20060419
  Transmission Date: 20061013
  Serious: Yes (Hospitalization)
  Sender: FDA-Public Use
  Company Number: 2006-141567-NL

PATIENT
  Age: 17 Year
  Sex: Male

DRUGS (1)
  1. MIRTAZAPINE [Suspect]
     Indication: DEPRESSION
     Dosage: 30 MG QD
     Route: 048

REACTIONS (3)
  - AGGRESSION [None]
  - AGITATION [None]
  - DEPRESSION [None]
